FAERS Safety Report 13298703 (Version 2)
Quarter: 2017Q2

REPORT INFORMATION
  Report Type: Spontaneous
  Country: US (occurrence: US)
  Receive Date: 20170306
  Receipt Date: 20170509
  Transmission Date: 20170830
  Serious: No
  Sender: FDA-Public Use
  Company Number: PHEH2017US006321

PATIENT
  Sex: Female
  Weight: 56.7 kg

DRUGS (2)
  1. GILENYA [Suspect]
     Active Substance: FINGOLIMOD HYDROCHLORIDE
     Indication: PRODUCT USED FOR UNKNOWN INDICATION
     Dosage: UNK
     Route: 065
     Dates: start: 20161014, end: 20170228
  2. VITAMIN D3 [Concomitant]
     Active Substance: CHOLECALCIFEROL
     Indication: MULTIPLE SCLEROSIS
     Dosage: 5000 IU, QD
     Route: 065
     Dates: start: 201302, end: 201702

REACTIONS (1)
  - Maternal exposure during pregnancy [Unknown]
